FAERS Safety Report 18265019 (Version 3)
Quarter: 2020Q4

REPORT INFORMATION
  Report Type: Spontaneous
  Country: US (occurrence: US)
  Receive Date: 20200914
  Receipt Date: 20201112
  Transmission Date: 20210113
  Serious: Yes (Hospitalization)
  Sender: FDA-Public Use
  Company Number: US-JNJFOC-A-NJ2020-207011

PATIENT
  Age: 77 Year
  Sex: Female

DRUGS (19)
  1. ATENOLOL. [Concomitant]
     Active Substance: ATENOLOL
  2. MUCINEX [Concomitant]
     Active Substance: GUAIFENESIN
  3. VITAMIN D3 [Concomitant]
     Active Substance: CHOLECALCIFEROL
  4. DICLOFENAC SODIUM. [Concomitant]
     Active Substance: DICLOFENAC SODIUM
  5. OMEPRAZOLE. [Concomitant]
     Active Substance: OMEPRAZOLE
  6. PILOCARPINE HCL [Concomitant]
     Active Substance: PILOCARPINE HYDROCHLORIDE
  7. SIMPONI ARIA [Concomitant]
     Active Substance: GOLIMUMAB
  8. TRAMADOL HCL [Concomitant]
     Active Substance: TRAMADOL HYDROCHLORIDE
  9. TADALAFIL. [Concomitant]
     Active Substance: TADALAFIL
  10. FUROSEMIDE. [Concomitant]
     Active Substance: FUROSEMIDE
  11. CALCIUM [Concomitant]
     Active Substance: CALCIUM
  12. COLACE [Concomitant]
     Active Substance: DOCUSATE SODIUM
  13. OPSUMIT [Suspect]
     Active Substance: MACITENTAN
     Indication: PULMONARY ARTERIAL HYPERTENSION
     Route: 048
     Dates: start: 20150807
  14. IRON [Concomitant]
     Active Substance: IRON
  15. ADEMPAS [Concomitant]
     Active Substance: RIOCIGUAT
     Dosage: 1 MG
  16. ESTRACE [Concomitant]
     Active Substance: ESTRADIOL
  17. LISINOPRIL. [Concomitant]
     Active Substance: LISINOPRIL
  18. FISH OIL [Concomitant]
     Active Substance: FISH OIL
  19. MIRALAX [Concomitant]
     Active Substance: POLYETHYLENE GLYCOL 3350

REACTIONS (3)
  - Product dose omission issue [Recovered/Resolved]
  - Cardiac operation [Recovering/Resolving]
  - Cerebrovascular accident [Recovering/Resolving]
